FAERS Safety Report 23882158 (Version 2)
Quarter: 2024Q2

REPORT INFORMATION
  Report Type: Spontaneous
  Country: US (occurrence: US)
  Receive Date: 20240521
  Receipt Date: 20240606
  Transmission Date: 20240716
  Serious: No
  Sender: FDA-Public Use
  Company Number: US-AMGEN-USASP2024097639

PATIENT
  Age: 77 Year
  Sex: Female

DRUGS (6)
  1. REPATHA [Suspect]
     Active Substance: EVOLOCUMAB
     Indication: Product used for unknown indication
     Dosage: 140 MILLIGRAM, Q2WK
     Route: 058
     Dates: start: 20240430
  2. ASPIRIN [Concomitant]
     Active Substance: ASPIRIN
     Indication: Product used for unknown indication
     Dosage: UNK UNK, QD
     Route: 065
  3. LEVALBUTEROL TARTRATE [Concomitant]
     Active Substance: LEVALBUTEROL TARTRATE
     Indication: Product used for unknown indication
     Dosage: 45 MICROGRAM
     Route: 065
  4. RESCUE [Concomitant]
     Dosage: INHALER AS NEEDED; ONE PUFF
     Route: 065
  5. GUAIFENESIN [Concomitant]
     Active Substance: GUAIFENESIN
     Dosage: 600 MILLIGRAM, TID
     Route: 065
  6. IMFINZI [Concomitant]
     Active Substance: DURVALUMAB
     Dosage: UNK
     Route: 065
     Dates: start: 202303, end: 2024

REACTIONS (1)
  - Activated partial thromboplastin time shortened [Unknown]

NARRATIVE: CASE EVENT DATE: 20240508
